FAERS Safety Report 9695696 (Version 1)
Quarter: 2013Q4

REPORT INFORMATION
  Report Type: Spontaneous
  Country: US (occurrence: US)
  Receive Date: 20131119
  Receipt Date: 20131119
  Transmission Date: 20140711
  Serious: Yes (Hospitalization)
  Sender: FDA-Public Use
  Company Number: US-B.I. PHARMACEUTICALS,INC./RIDGEFIELD-2013-BI-37398BP

PATIENT
  Sex: Female

DRUGS (3)
  1. COMBIVENT [Suspect]
     Indication: ASTHMA
     Dosage: STRENGTH: 18 MCG / 103 MCG; DAILY DOSE: 144 MCG / 824 MCG
     Route: 055
     Dates: start: 2006, end: 201307
  2. SYMBICORT [Concomitant]
     Indication: ASTHMA
     Dosage: STRENGTH: 1 INHALATION; DAILY DOSE: 1 INHALATION
     Route: 055
     Dates: start: 201309
  3. DALIRESP [Concomitant]
     Indication: ASTHMA
     Dosage: 500 MCG
     Route: 048

REACTIONS (2)
  - Dyspnoea [Recovered/Resolved]
  - Off label use [Recovered/Resolved]
